FAERS Safety Report 5907727-0 (Version None)
Quarter: 2008Q4

REPORT INFORMATION
  Report Type: 
  Country: None (occurrence: None)
  Receive Date: 20081003
  Receipt Date: 20080926
  Transmission Date: 20090506
  Serious: Yes (Hospitalization)
  Sender: FDA-Public Use
  Company Number: GB-BAUSCH-2008BL004175

PATIENT
  Age: 71 Year
  Sex: Female

DRUGS (11)
  1. PREDNISOLONE [Suspect]
     Indication: DRUG USE FOR UNKNOWN INDICATION
     Route: 048
  2. ENBREL [Suspect]
     Indication: RHEUMATOID ARTHRITIS
     Route: 058
  3. BECONASE [Concomitant]
     Route: 045
  4. CALCICHEW D3 /UNK/ [Concomitant]
     Route: 048
  5. DICLOFENAC [Concomitant]
     Route: 054
  6. FERROUS SULFATE TAB [Concomitant]
     Route: 048
  7. FOLIC ACID [Concomitant]
     Route: 048
  8. IBANDRONIC ACID [Concomitant]
     Route: 042
  9. IPRATROPIUM BROMIDE [Concomitant]
     Route: 045
  10. METHOTREXATE SODIUM [Concomitant]
  11. RANITIDINE [Concomitant]

REACTIONS (1)
  - FEMORAL NECK FRACTURE [None]
